FAERS Safety Report 12471010 (Version 1)
Quarter: 2016Q2

REPORT INFORMATION
  Report Type: Spontaneous
  Country: US (occurrence: None)
  Receive Date: 20160615
  Receipt Date: 20160615
  Transmission Date: 20160815
  Serious: No
  Sender: FDA-Public Use
  Company Number: None

PATIENT
  Age: 61 Year
  Sex: Female

DRUGS (1)
  1. ORENCIA [Suspect]
     Active Substance: ABATACEPT
     Indication: RHEUMATOID ARTHRITIS
     Dosage: 1 SYRINGE EVERY 7 DAYS SUB-Q
     Route: 058
     Dates: start: 20160413

REACTIONS (3)
  - Muscle spasms [None]
  - Headache [None]
  - Flushing [None]

NARRATIVE: CASE EVENT DATE: 20160610
